FAERS Safety Report 12542526 (Version 1)
Quarter: 2016Q3

REPORT INFORMATION
  Report Type: Spontaneous
  Country: GB (occurrence: GB)
  Receive Date: 20160709
  Receipt Date: 20160709
  Transmission Date: 20161109
  Serious: Yes (Other)
  Sender: FDA-Public Use
  Company Number: GB-CIPLA LTD.-2016GB09111

PATIENT

DRUGS (3)
  1. CARBOPLATIN. [Suspect]
     Active Substance: CARBOPLATIN
     Indication: SMALL CELL LUNG CANCER
     Dosage: AUC 5 ON 21-DAY CYCLE
     Route: 042
  2. IRINOTECAN [Suspect]
     Active Substance: IRINOTECAN
     Indication: SMALL CELL LUNG CANCER
     Dosage: 60 MG/M2, ON 21-DAY CYCLE
     Route: 042
  3. ATROPINE. [Concomitant]
     Active Substance: ATROPINE
     Indication: CHOLINERGIC SYNDROME
     Dosage: UNK
     Route: 065

REACTIONS (1)
  - Hyperkalaemia [Unknown]
